FAERS Safety Report 9687785 (Version 3)
Quarter: 2014Q1

REPORT INFORMATION
  Report Type: Spontaneous
  Country: US (occurrence: US)
  Receive Date: 20131114
  Receipt Date: 20140114
  Transmission Date: 20141002
  Serious: No
  Sender: FDA-Public Use
  Company Number: US-PFIZER INC-2013323119

PATIENT
  Sex: Female
  Weight: 2.32 kg

DRUGS (3)
  1. PROTONIX [Suspect]
     Indication: NAUSEA
     Dosage: 40 MG, SINGLE
     Route: 064
     Dates: start: 201302, end: 201308
  2. PROTONIX [Suspect]
     Dosage: 40 MG, SINGLE
     Dates: start: 201305
  3. PROTONIX [Suspect]
     Dosage: 40 MG, SINGLE
     Dates: start: 20130831

REACTIONS (3)
  - Maternal exposure during pregnancy [Unknown]
  - Premature baby [Unknown]
  - Drug screen false positive [Unknown]
